FAERS Safety Report 9169463 (Version 1)
Quarter: 2013Q1

REPORT INFORMATION
  Report Type: Spontaneous
  Country: US (occurrence: US)
  Receive Date: 20130318
  Receipt Date: 20130318
  Transmission Date: 20140127
  Serious: Yes (Congenital Anomaly, Other)
  Sender: FDA-Public Use
  Company Number: US-TEVA-392079USA

PATIENT
  Age: 0 Year
  Sex: Male

DRUGS (1)
  1. PROVIGIL [Suspect]
     Indication: NARCOLEPSY

REACTIONS (1)
  - Hypospadias [Unknown]
